FAERS Safety Report 8337950-X (Version None)
Quarter: 2012Q2

REPORT INFORMATION
  Report Type: 
  Country: None (occurrence: None)
  Receive Date: 20120504
  Receipt Date: 20120425
  Transmission Date: 20120825
  Serious: Yes (Other)
  Sender: FDA-Public Use
  Company Number: BR-JNJFOC-20120412992

PATIENT
  Age: 46 Year
  Sex: Female
  Weight: 56 kg

DRUGS (1)
  1. ORTHO EVRA [Suspect]
     Indication: CONTRACEPTION
     Route: 062
     Dates: start: 20101101

REACTIONS (6)
  - URINARY TRACT INFECTION [None]
  - MENSTRUAL DISORDER [None]
  - HEADACHE [None]
  - SWELLING [None]
  - METRORRHAGIA [None]
  - MUSCLE SPASMS [None]
